FAERS Safety Report 10649109 (Version 1)
Quarter: 2014Q4

REPORT INFORMATION
  Report Type: Spontaneous
  Country: US (occurrence: US)
  Receive Date: 20141212
  Receipt Date: 20141212
  Transmission Date: 20150529
  Serious: Yes (Other)
  Sender: FDA-Public Use
  Company Number: US-PFIZER INC-2014338696

PATIENT
  Age: 78 Year
  Sex: Female
  Weight: 96 kg

DRUGS (3)
  1. DILTIAZEM [Concomitant]
     Active Substance: DILTIAZEM
     Indication: HYPERTENSION
     Dosage: 180 MG, 2X/DAY
  2. DILTIAZEM [Concomitant]
     Active Substance: DILTIAZEM
     Dosage: 180 MG, 1X/DAY
  3. PROTONIX [Suspect]
     Active Substance: PANTOPRAZOLE SODIUM
     Indication: HIATUS HERNIA
     Dosage: 40 MG, 2X/DAY

REACTIONS (1)
  - Aortic valve disease [Unknown]

NARRATIVE: CASE EVENT DATE: 2013
